FAERS Safety Report 24419514 (Version 2)
Quarter: 2024Q4

REPORT INFORMATION
  Report Type: Report from Study
  Country: US (occurrence: US)
  Receive Date: 20241010
  Receipt Date: 20241018
  Transmission Date: 20250115
  Serious: No
  Sender: ROCHE
  Company Number: US-ROCHE-2938711

PATIENT
  Age: 18 Year
  Sex: Female

DRUGS (12)
  1. CATHFLO ACTIVASE [Suspect]
     Active Substance: ALTEPLASE
     Indication: Cardiomyopathy
     Dosage: DATE OF SERVICE 08/NOV/2021, 10/NOV/2021, 12/NOV/2021
     Route: 065
  2. CATHFLO ACTIVASE [Suspect]
     Active Substance: ALTEPLASE
     Indication: End stage renal disease
     Dosage: DATE OF SERVICE: 01/MAY/2023, 20/SEP/2021, 22/SEP/2021, 08/SEP/2021, 27/SEP/2021, 24/SEP/2021, 29/SE
     Route: 065
  3. CATHFLO ACTIVASE [Suspect]
     Active Substance: ALTEPLASE
     Indication: Congenital anomaly
     Dosage: DATE OF SERVICE: 02/JAN/2023, 04/JAN/2023, 06/JAN/2023, 09/JAN/2023, 11/JAN/2023, 13/JAN/2023, 16/JA
     Route: 065
  4. CATHFLO ACTIVASE [Suspect]
     Active Substance: ALTEPLASE
     Indication: Device dependence
     Dosage: DATE OF SERVICE 01/SEP/2021
     Route: 065
  5. CATHFLO ACTIVASE [Suspect]
     Active Substance: ALTEPLASE
     Indication: Congenital central nervous system anomaly
     Dosage: DATE OF SERVICE 17/NOV/2021, 19/NOV/2021,
     Route: 065
  6. CATHFLO ACTIVASE [Suspect]
     Active Substance: ALTEPLASE
     Dosage: DATE OF SERVICE 28/JAN/2022
     Route: 065
  7. CARVEDILOL [Concomitant]
     Active Substance: CARVEDILOL
  8. LISINOPRIL [Concomitant]
     Active Substance: LISINOPRIL
  9. PARICALCITOL [Concomitant]
     Active Substance: PARICALCITOL
  10. CYPROHEPTADINE [Concomitant]
     Active Substance: CYPROHEPTADINE
  11. EPOGEN [Concomitant]
     Active Substance: ERYTHROPOIETIN
  12. KEPPRA [Concomitant]
     Active Substance: LEVETIRACETAM

REACTIONS (2)
  - Off label use [Unknown]
  - No adverse event [Unknown]
